FAERS Safety Report 26133643 (Version 1)
Quarter: 2025Q4

REPORT INFORMATION
  Report Type: Spontaneous
  Country: CN (occurrence: CN)
  Receive Date: 20251209
  Receipt Date: 20251209
  Transmission Date: 20260118
  Serious: Yes (Other)
  Sender: Kenvue
  Company Number: CN-KENVUE-20251200709

PATIENT
  Age: 14 Year
  Weight: 60 kg

DRUGS (2)
  1. CHILDRENS MOTRIN [Suspect]
     Active Substance: IBUPROFEN
     Indication: Upper respiratory tract infection
     Dosage: 12 MILLILITER, SINGLE
  2. CHILDRENS MOTRIN [Suspect]
     Active Substance: IBUPROFEN
     Indication: Pyrexia

REACTIONS (4)
  - Off label use [Unknown]
  - Pruritus [Recovering/Resolving]
  - Rash pruritic [Recovered/Resolved]
  - Eyelid oedema [Recovered/Resolved]
